FAERS Safety Report 6544000-4 (Version None)
Quarter: 2010Q1

REPORT INFORMATION
  Report Type: 
  Country: None (occurrence: None)
  Receive Date: 20100120
  Receipt Date: 20100107
  Transmission Date: 20100710
  Serious: Yes (Hospitalization, Other)
  Sender: FDA-Public Use
  Company Number: US-PFIZER INC-2010003348

PATIENT
  Age: 29 Year
  Sex: Female
  Weight: 106 kg

DRUGS (7)
  1. ZOLOFT [Interacting]
     Indication: ANTIDEPRESSANT THERAPY
     Dosage: 50 MG, 1X/DAY
  2. HALOPERIDOL [Suspect]
     Indication: PSYCHOTIC DISORDER
     Dosage: 5 MG, 1X/DAY
     Route: 048
  3. HALOPERIDOL [Suspect]
     Dosage: 7.5 TO 12.5 MG, 1X/DAY
     Route: 048
  4. EFFEXOR [Interacting]
     Indication: ANTIDEPRESSANT THERAPY
     Dosage: 300 MG, 1X/DAY
     Route: 048
  5. QUETIAPINE [Interacting]
     Indication: PSYCHOTIC DISORDER
     Dosage: 1 IN 1 DAY
     Route: 048
  6. ELEVIT PRONATAL [Concomitant]
     Indication: VITAMIN SUPPLEMENTATION
     Dosage: 1 IN 1 DAY
  7. FOLIC ACID [Concomitant]
     Indication: PROPHYLAXIS OF NEURAL TUBE DEFECT
     Dosage: 5 MG, 1X/DAY
     Route: 048

REACTIONS (10)
  - CAESAREAN SECTION [None]
  - DRUG EXPOSURE DURING PREGNANCY [None]
  - DRUG INTERACTION [None]
  - HYPEREMESIS GRAVIDARUM [None]
  - POSTPARTUM DEPRESSION [None]
  - PREGNANCY [None]
  - PREMATURE LABOUR [None]
  - PSYCHOTIC DISORDER [None]
  - URINARY TRACT INFECTION [None]
  - WEIGHT DECREASED [None]
